FAERS Safety Report 5149499-6 (Version None)
Quarter: 2006Q4

REPORT INFORMATION
  Report Type: 
  Country: None (occurrence: None)
  Receive Date: 20061113
  Receipt Date: 20060215
  Transmission Date: 20070319
  Serious: No
  Sender: FDA-Public Use
  Company Number: US-GLAXOSMITHKLINE-A0593865A

PATIENT
  Age: 62 Year
  Sex: Male

DRUGS (8)
  1. COREG [Suspect]
     Dosage: 12.5MG TWICE PER DAY
     Route: 048
  2. ALDACTONE [Concomitant]
  3. COZAAR [Concomitant]
  4. PRAVACHOL [Concomitant]
  5. FOLTX [Concomitant]
  6. ZETIA [Concomitant]
  7. LANOXIN [Concomitant]
  8. PLAVIX [Concomitant]

REACTIONS (4)
  - COUGH [None]
  - EJECTION FRACTION ABNORMAL [None]
  - HEPATIC CYST [None]
  - RALES [None]
